FAERS Safety Report 4661216-2 (Version None)
Quarter: 2005Q2

REPORT INFORMATION
  Report Type: 
  Country: None (occurrence: None)
  Receive Date: 20050511
  Receipt Date: 20050503
  Transmission Date: 20051028
  Serious: Yes (Hospitalization)
  Sender: FDA-Public Use
  Company Number: 214192

PATIENT
  Age: 62 Year
  Sex: Female
  Weight: 68 kg

DRUGS (5)
  1. MABTHERA (RITUXIMAB) CONC FOR SOLUTION FOR INFUSION [Suspect]
     Indication: NON-HODGKIN'S LYMPHOMA
     Dosage: 600 MG
     Dates: start: 20010521, end: 20010521
  2. CYCLOPHOSPHAMIDE [Suspect]
     Indication: NON-HODGKIN'S LYMPHOMA
     Dosage: 1250 MG
     Dates: start: 20010521, end: 20010521
  3. DOXORUBICIN HCL [Suspect]
     Indication: NON-HODGKIN'S LYMPHOMA
     Dosage: 80 MG
     Dates: start: 20010521
  4. VINCRISTINE [Suspect]
     Indication: NON-HODGKIN'S LYMPHOMA
     Dosage: 2 MG
     Dates: start: 20010521, end: 20010521
  5. PREDNISONE(PREDNISONE) [Suspect]
     Indication: NON-HODGKIN'S LYMPHOMA
     Dates: start: 20010521, end: 20010528

REACTIONS (1)
  - NEUTROPENIA [None]
